FAERS Safety Report 9846978 (Version 1)
Quarter: 2013Q4

REPORT INFORMATION
  Report Type: Spontaneous
  Country: US (occurrence: None)
  Receive Date: 20131219
  Receipt Date: 20131219
  Transmission Date: 20140711
  Serious: Yes (Other)
  Sender: FDA-Public Use
  Company Number: 163-20785-13050113

PATIENT
  Age: 65 Year
  Sex: Female
  Weight: 59.9 kg

DRUGS (11)
  1. THALOMID (THALIDOMIDE) (50 MILLIGRAM, CAPSULES) [Suspect]
     Indication: PLASMA CELL MYELOMA
     Route: 048
     Dates: start: 200910
  2. DEXAMETHASONE (DEXAMETHASONE) (TABLETS) [Suspect]
  3. VITAMIN E (TOCOPHEROL)(CAPSULES) [Concomitant]
  4. FISH O8L(FISH OIL) [Concomitant]
  5. VELCADE(BORTEZOMID) [Concomitant]
  6. POTASSIUM CHLORIDE(POTASSIUM CHLORIDE) TABLETS) [Concomitant]
  7. ACYCLOVIR(ACICLOVIR)(TABLETS) [Concomitant]
  8. GABAPENTIN(GABAPENTIN)(CAPSULES) [Concomitant]
  9. TEMAZEPAM(TEMAZEPAM)(CAPSULES) [Concomitant]
  10. METANX(METANX)(TABLETS) [Concomitant]
  11. CALCIUM PLUS VITAMIN D (CALCIUM D3 STADA)(TABLETS) [Concomitant]

REACTIONS (3)
  - Rash generalised [None]
  - Muscle spasms [None]
  - Contusion [None]
